FAERS Safety Report 5307763-1 (Version None)
Quarter: 2007Q2

REPORT INFORMATION
  Report Type: 
  Country: None (occurrence: None)
  Receive Date: 20070418
  Receipt Date: 20070410
  Transmission Date: 20071010
  Serious: Yes (Death, Hospitalization)
  Sender: FDA-Public Use
  Company Number: 163-20785-06010536

PATIENT
  Age: 60 Year
  Sex: Male

DRUGS (9)
  1. THALOMID [Suspect]
     Indication: PROSTATE CANCER
     Dosage: 50 MG, DAILY, ORAL
     Route: 048
     Dates: start: 20051102
  2. COLACE (DOCUSATE SODIUM) [Concomitant]
  3. PERCOCET [Concomitant]
  4. FLOMAX [Concomitant]
  5. MEGESTROL ACETATE [Concomitant]
  6. ATENOLOL [Concomitant]
  7. MVI (MULTIVITAMINS) [Concomitant]
  8. PEPCID AC [Concomitant]
  9. VALIUM [Concomitant]

REACTIONS (4)
  - MALIGNANT NEOPLASM PROGRESSION [None]
  - PROSTATE CANCER [None]
  - SPINAL CORD COMPRESSION [None]
  - SPINAL OPERATION [None]
